FAERS Safety Report 4761021-2 (Version None)
Quarter: 2005Q3

REPORT INFORMATION
  Report Type: 
  Country: None (occurrence: None)
  Receive Date: 20050901
  Receipt Date: 20050823
  Transmission Date: 20060218
  Serious: Yes (Other)
  Sender: FDA-Public Use
  Company Number: 2005-03139

PATIENT
  Age: 44 Year
  Sex: Female

DRUGS (2)
  1. TRELSTAR DEPOT [Suspect]
     Indication: BREAST CANCER
     Dosage: 3.75 MG, Q 28 DAYS, INTRAMUSCULAR
     Route: 030
     Dates: start: 20041229, end: 20050517
  2. AROMASIN [Suspect]
     Indication: BREAST CANCER
     Dosage: 25 MG, DAILY, ORAL
     Route: 048
     Dates: start: 20041229, end: 20050621

REACTIONS (4)
  - LYMPHOEDEMA [None]
  - OEDEMA PERIPHERAL [None]
  - PERIPHERAL SENSORY NEUROPATHY [None]
  - SPINAL OSTEOARTHRITIS [None]
